FAERS Safety Report 10397737 (Version 2)
Quarter: 2014Q3

REPORT INFORMATION
  Report Type: Report from Study
  Country: US (occurrence: US)
  Receive Date: 20140821
  Receipt Date: 20140904
  Transmission Date: 20150326
  Serious: Yes (Other)
  Sender: FDA-Public Use
  Company Number: US-BIOGENIDEC-2014BI080488

PATIENT
  Age: 57 Year
  Sex: Female

DRUGS (2)
  1. TYSABRI [Suspect]
     Active Substance: NATALIZUMAB
     Indication: MULTIPLE SCLEROSIS
     Route: 042
     Dates: start: 20110224
  2. AVONEX [Concomitant]
     Active Substance: INTERFERON BETA-1A
     Indication: MULTIPLE SCLEROSIS
     Route: 030
     Dates: start: 20031124

REACTIONS (9)
  - Tongue neoplasm malignant stage unspecified [Unknown]
  - Blindness transient [Recovered/Resolved]
  - Skin lesion [Unknown]
  - Coordination abnormal [Not Recovered/Not Resolved]
  - Aphasia [Recovered/Resolved]
  - Hydrocephalus [Recovered/Resolved]
  - Immunosuppression [Not Recovered/Not Resolved]
  - Malaise [Recovered/Resolved]
  - Aphagia [Recovered/Resolved]

NARRATIVE: CASE EVENT DATE: 201402
